FAERS Safety Report 17556011 (Version 2)
Quarter: 2020Q2

REPORT INFORMATION
  Report Type: Spontaneous
  Country: US (occurrence: US)
  Receive Date: 20200318
  Receipt Date: 20200409
  Transmission Date: 20200713
  Serious: Yes (Death)
  Sender: FDA-Public Use
  Company Number: US-ALKERMES INC.-ALK-2020-001176

PATIENT
  Age: 56 Year
  Sex: Male
  Weight: 155.56 kg

DRUGS (3)
  1. VIVITROL [Suspect]
     Active Substance: NALTREXONE
     Indication: ALCOHOLISM
     Dosage: 380 MG, QMO
     Route: 030
     Dates: start: 20160425, end: 20160425
  2. VIVITROL [Suspect]
     Active Substance: NALTREXONE
     Dosage: 380 MG, QMO
     Route: 030
     Dates: start: 20160115, end: 20160115
  3. VIVITROL [Suspect]
     Active Substance: NALTREXONE
     Indication: SUBSTANCE DEPENDENCE
     Dosage: 380 MG, QMO
     Route: 030
     Dates: start: 20200310

REACTIONS (6)
  - Skin laceration [Fatal]
  - Haemorrhage [Fatal]
  - Injury [Fatal]
  - Myocardial infarction [Fatal]
  - Cardiac arrest [Fatal]
  - Fall [Fatal]

NARRATIVE: CASE EVENT DATE: 20200311
